FAERS Safety Report 9278425 (Version 1)
Quarter: 2013Q2

REPORT INFORMATION
  Report Type: Report from Study
  Country: JP (occurrence: JP)
  Receive Date: 20130508
  Receipt Date: 20130508
  Transmission Date: 20140414
  Serious: Yes (Other)
  Sender: FDA-Public Use
  Company Number: JP-SANOFI-AVENTIS-2013SA046270

PATIENT
  Sex: Male

DRUGS (3)
  1. DOCETAXEL [Suspect]
     Indication: PROSTATE CANCER
     Dosage: GIVEN ON DAYS 2 AND 9 OF TREATMENT CYCLE
     Route: 065
  2. ESTRAMUSTINE [Suspect]
     Indication: PROSTATE CANCER
     Dosage: GIVEN ON DAY 1 TO DAY 3 AND DAY 8 TO DAY 10 OF TREATMENT CYCLE.
     Route: 065
  3. DEXAMETHASONE [Concomitant]

REACTIONS (1)
  - Cholecystitis [Unknown]
